FAERS Safety Report 17265204 (Version 1)
Quarter: 2020Q1

REPORT INFORMATION
  Report Type: Spontaneous
  Country: GB (occurrence: GB)
  Receive Date: 20200114
  Receipt Date: 20200114
  Transmission Date: 20200409
  Serious: Yes (Hospitalization, Other)
  Sender: FDA-Public Use
  Company Number: GB-AMGEN-GBRSP2020002920

PATIENT

DRUGS (3)
  1. THALIDOMIDE [Suspect]
     Active Substance: THALIDOMIDE
     Indication: AMYLOIDOSIS
     Dosage: 50 MILLIGRAM, (DAY 1 TO 28)
     Route: 065
  2. DEXAMETHASONE. [Suspect]
     Active Substance: DEXAMETHASONE
     Indication: AMYLOIDOSIS
     Dosage: 20 MILLIGRAM, (DAYS 1, 8 AND 15)
     Route: 065
  3. CARFILZOMIB [Suspect]
     Active Substance: CARFILZOMIB
     Indication: AMYLOIDOSIS
     Dosage: 20 MILLIGRAM/SQ. METER, DAY 1 CYCLE 1 (DAYS 1, 8 AND 15)
     Route: 042

REACTIONS (10)
  - Drug ineffective [Unknown]
  - Toxicity to various agents [Unknown]
  - Acute kidney injury [Recovered/Resolved]
  - Off label use [Unknown]
  - Hypoxia [Unknown]
  - Pyrexia [Unknown]
  - Abdominal pain [Unknown]
  - Adverse event [Unknown]
  - Therapy partial responder [Unknown]
  - Hypotension [Unknown]
